FAERS Safety Report 14983883 (Version 1)
Quarter: 2018Q2

REPORT INFORMATION
  Report Type: Spontaneous
  Country: US (occurrence: US)
  Receive Date: 20180515
  Receipt Date: 20180515
  Transmission Date: 20180711
  Serious: No
  Sender: FDA-Public Use
  Company Number: None

PATIENT
  Age: 54 Year
  Sex: Female

DRUGS (1)
  1. SUPARTZ FX PFS 25MG/2.5ML BIOVENTUS [Suspect]
     Active Substance: HYALURONATE SODIUM
     Indication: ILL-DEFINED DISORDER
     Dosage: ?          OTHER FREQUENCY:ONCE A WEEK FOR 5 ;?
     Route: 014
     Dates: start: 20180302

REACTIONS (2)
  - Injection site joint pain [None]
  - Arthralgia [None]

NARRATIVE: CASE EVENT DATE: 20180511
